FAERS Safety Report 12519492 (Version 1)
Quarter: 2016Q2

REPORT INFORMATION
  Report Type: Report from Study
  Country: US (occurrence: US)
  Receive Date: 20160630
  Receipt Date: 20160630
  Transmission Date: 20160815
  Serious: Yes (Death)
  Sender: FDA-Public Use
  Company Number: US-ASTRAZENECA-2016SE70926

PATIENT
  Age: 13162 Day
  Sex: Male
  Weight: 68 kg

DRUGS (2)
  1. SEROQUEL XR [Suspect]
     Active Substance: QUETIAPINE FUMARATE
     Route: 048
     Dates: end: 20160614
  2. UNSPECIFIED [Concomitant]
     Active Substance: UNSPECIFIED INGREDIENT
     Dosage: MOST LIKELY DAILY OR BEFORE BED

REACTIONS (1)
  - Death [Fatal]

NARRATIVE: CASE EVENT DATE: 20160615
